FAERS Safety Report 7536550-9 (Version None)
Quarter: 2011Q2

REPORT INFORMATION
  Report Type: 
  Country: None (occurrence: None)
  Receive Date: 20110602
  Receipt Date: 20110524
  Transmission Date: 20111010
  Serious: Yes (Other)
  Sender: FDA-Public Use
  Company Number: 2011SP023751

PATIENT
  Age: 49 Year
  Sex: Male
  Weight: 59 kg

DRUGS (2)
  1. REBETOL [Suspect]
     Indication: HEPATITIS C
     Dosage: 800 MG;QD;PO
     Route: 048
     Dates: start: 20101104, end: 20101109
  2. INTERFERON [Suspect]
     Indication: HEPATITIS C
     Dosage: 6 MIU; TIW; IV
     Route: 042
     Dates: start: 20101104, end: 20101109

REACTIONS (2)
  - APATHY [None]
  - DECREASED APPETITE [None]
